FAERS Safety Report 6823945-1 (Version None)
Quarter: 2010Q3

REPORT INFORMATION
  Report Type: 
  Country: None (occurrence: None)
  Receive Date: 20100708
  Receipt Date: 20060921
  Transmission Date: 20110219
  Serious: No
  Sender: FDA-Public Use
  Company Number: US-PFIZER INC-2006114708

PATIENT
  Sex: Female

DRUGS (2)
  1. CHANTIX [Suspect]
     Dates: end: 20060901
  2. ANTIBIOTICS [Suspect]
     Indication: TOOTH INFECTION

REACTIONS (2)
  - NAUSEA [None]
  - TOOTH INFECTION [None]
